FAERS Safety Report 5747234-1 (Version None)
Quarter: 2008Q2

REPORT INFORMATION
  Report Type: 
  Country: None (occurrence: None)
  Receive Date: 20080519
  Receipt Date: 20080427
  Transmission Date: 20081010
  Serious: Yes (Life-Threatening)
  Sender: FDA-Public Use
  Company Number: POMP-1000120

PATIENT
  Age: 18 Month
  Sex: Male
  Weight: 9.9 kg

DRUGS (3)
  1. MYOZYME [Suspect]
     Indication: GLYCOGEN STORAGE DISEASE TYPE II
     Dosage: 200 MG, Q2W, INTRAVENOUS
     Route: 042
     Dates: start: 20070301, end: 20080407
  2. FUROSEMIDE [Concomitant]
  3. CAPTOPRIL [Concomitant]

REACTIONS (5)
  - BRONCHOSPASM [None]
  - CYANOSIS [None]
  - DYSPNOEA [None]
  - HYPERSENSITIVITY [None]
  - OXYGEN SATURATION DECREASED [None]
